FAERS Safety Report 9296163 (Version 4)
Quarter: 2013Q3

REPORT INFORMATION
  Report Type: Report from Study
  Country: US (occurrence: US)
  Receive Date: 20130517
  Receipt Date: 20130930
  Transmission Date: 20140515
  Serious: Yes (Hospitalization, Other)
  Sender: FDA-Public Use
  Company Number: US-ACTELION-A-US2013-83124

PATIENT
  Age: 70 Year
  Sex: Male

DRUGS (3)
  1. TRACLEER [Suspect]
     Indication: PULMONARY ARTERIAL HYPERTENSION
     Dosage: UNK
     Route: 048
  2. METHOTREXATE [Suspect]
  3. SILDENAFIL [Concomitant]

REACTIONS (6)
  - Liver disorder [Unknown]
  - Weight decreased [Unknown]
  - Hepatic failure [Unknown]
  - Ascites [Unknown]
  - Localised oedema [Unknown]
  - Abdominal pain [Unknown]
